FAERS Safety Report 8438376-0 (Version None)
Quarter: 2012Q2

REPORT INFORMATION
  Report Type: 
  Country: None (occurrence: None)
  Receive Date: 20120614
  Receipt Date: 20120611
  Transmission Date: 20120825
  Serious: Yes (Hospitalization)
  Sender: FDA-Public Use
  Company Number: FR-MERCK-1008FRA00010

PATIENT
  Age: 59 Year
  Sex: Male
  Weight: 101 kg

DRUGS (2)
  1. JANUMET [Suspect]
     Indication: TYPE 2 DIABETES MELLITUS
     Route: 048
     Dates: start: 20100101
  2. SITAGLIPTIN PHOSPHATE [Suspect]
     Indication: TYPE 2 DIABETES MELLITUS
     Route: 048
     Dates: start: 20100510, end: 20100512

REACTIONS (4)
  - DIABETES MELLITUS [None]
  - NAUSEA [None]
  - TOOTH ABSCESS [None]
  - ARTHRALGIA [None]
